FAERS Safety Report 12835611 (Version 1)
Quarter: 2016Q4

REPORT INFORMATION
  Report Type: Spontaneous
  Country: AU (occurrence: AU)
  Receive Date: 20161011
  Receipt Date: 20161011
  Transmission Date: 20170207
  Serious: No
  Sender: FDA-Public Use
  Company Number: AU-009507513-1609AUS012369

PATIENT

DRUGS (1)
  1. DIPROSONE [Suspect]
     Active Substance: BETAMETHASONE DIPROPIONATE
     Route: 048

REACTIONS (1)
  - Incorrect route of drug administration [Unknown]
